FAERS Safety Report 17988638 (Version 1)
Quarter: 2020Q3

REPORT INFORMATION
  Report Type: Spontaneous
  Country: US (occurrence: US)
  Receive Date: 20200706
  Receipt Date: 20200706
  Transmission Date: 20201103
  Serious: Yes (Other)
  Sender: FDA-Public Use
  Company Number: None

PATIENT
  Age: 35 Year
  Sex: Female

DRUGS (2)
  1. PARAGARD T 380A [Suspect]
     Active Substance: COPPER
  2. PARAGARD T 380A [Concomitant]
     Active Substance: COPPER
     Dates: end: 20200610

REACTIONS (3)
  - Embedded device [None]
  - Complication of device removal [None]
  - Device breakage [None]

NARRATIVE: CASE EVENT DATE: 20200610
